FAERS Safety Report 7370722-1 (Version None)
Quarter: 2011Q1

REPORT INFORMATION
  Report Type: 
  Country: None (occurrence: None)
  Receive Date: 20110323
  Receipt Date: 20110311
  Transmission Date: 20110831
  Serious: Yes (Life-Threatening)
  Sender: FDA-Public Use
  Company Number: US-BAYER-2011-021943

PATIENT
  Age: 49 Year
  Sex: Male

DRUGS (2)
  1. ACETYLSALICYLIC ACID SRT [Suspect]
  2. CLOPIDOGREL [Suspect]

REACTIONS (6)
  - HYPOTENSION [None]
  - TACHYCARDIA [None]
  - HYPOXIA [None]
  - ABDOMINAL PAIN [None]
  - SHOCK HAEMORRHAGIC [None]
  - NAUSEA [None]
